FAERS Safety Report 21610874 (Version 2)
Quarter: 2022Q4

REPORT INFORMATION
  Report Type: Spontaneous
  Country: RU (occurrence: RU)
  Receive Date: 20221117
  Receipt Date: 20221209
  Transmission Date: 20230112
  Serious: Yes (Other)
  Sender: FDA-Public Use
  Company Number: RU-TEVA-2022-RU-2826403

PATIENT
  Age: 22 Year
  Sex: Female

DRUGS (5)
  1. DOXORUBICIN [Suspect]
     Active Substance: DOXORUBICIN
     Indication: Diffuse large B-cell lymphoma stage II
     Dosage: AS A PART OF R-CHOP REGIMEN CONTAINING RITUXIMAB, CYCLOPHOSPHAMIDE, DOXORUBICIN,VINCRISTINE AND PRED
     Route: 065
  2. VINCRISTINE [Suspect]
     Active Substance: VINCRISTINE
     Indication: Diffuse large B-cell lymphoma stage II
     Dosage: AS A PART OF R-CHOP REGIMEN CONTAINING RITUXIMAB, CYCLOPHOSPHAMIDE, DOXORUBICIN,VINCRISTINE AND PRED
     Route: 065
  3. RITUXIMAB [Suspect]
     Active Substance: RITUXIMAB
     Indication: Diffuse large B-cell lymphoma stage II
     Dosage: AS A PART OF R-CHOP REGIMEN CONTAINING RITUXIMAB, CYCLOPHOSPHAMIDE, DOXORUBICIN,VINCRISTINE AND PRED
     Route: 065
  4. CYCLOPHOSPHAMIDE [Suspect]
     Active Substance: CYCLOPHOSPHAMIDE
     Indication: Diffuse large B-cell lymphoma stage II
     Dosage: AS A PART OF R-CHOP REGIMEN CONTAINING RITUXIMAB, CYCLOPHOSPHAMIDE, DOXORUBICIN,VINCRISTINE AND PRED
     Route: 065
  5. PREDNISOLONE [Suspect]
     Active Substance: PREDNISOLONE
     Indication: Diffuse large B-cell lymphoma stage II
     Dosage: AS A PART OF R-CHOP REGIMEN CONTAINING RITUXIMAB, CYCLOPHOSPHAMIDE, DOXORUBICIN,VINCRISTINE AND PRED
     Route: 065

REACTIONS (2)
  - Stillbirth [Unknown]
  - Maternal exposure during pregnancy [Unknown]
